FAERS Safety Report 6030164-8 (Version None)
Quarter: 2009Q1

REPORT INFORMATION
  Report Type: 
  Country: None (occurrence: None)
  Receive Date: 20090107
  Receipt Date: 20081230
  Transmission Date: 20090719
  Serious: Yes (Death)
  Sender: FDA-Public Use
  Company Number: CN-PFIZER INC-2008161049

PATIENT

DRUGS (6)
  1. SOLU-MEDROL [Suspect]
     Indication: CHRONIC OBSTRUCTIVE PULMONARY DISEASE
     Route: 042
     Dates: start: 20081208, end: 20081216
  2. MEDROL [Suspect]
     Indication: CHRONIC OBSTRUCTIVE PULMONARY DISEASE
     Route: 048
     Dates: start: 20081217
  3. SULPERAZON [Concomitant]
     Route: 042
  4. GATIFLOXACIN [Concomitant]
  5. CEFODIZIME DISODIUM [Concomitant]
  6. ETIMICIN [Concomitant]

REACTIONS (1)
  - COMPLETED SUICIDE [None]
